FAERS Safety Report 23883612 (Version 3)
Quarter: 2024Q2

REPORT INFORMATION
  Report Type: Report from Study
  Country: FR (occurrence: FR)
  Receive Date: 20240522
  Receipt Date: 20240530
  Transmission Date: 20240715
  Serious: Yes (Hospitalization, Congenital Anomaly, Other)
  Sender: FDA-Public Use
  Company Number: FR-JAZZ PHARMACEUTICALS-2024-FR-003300

PATIENT

DRUGS (3)
  1. EPIDIOLEX [Suspect]
     Active Substance: CANNABIDIOL
     Indication: Epilepsy
     Dosage: 9.4 MILLIGRAM/KILOGRAM/DAY
     Route: 048
  2. EPIDIOLEX [Suspect]
     Active Substance: CANNABIDIOL
     Indication: Seizure
     Dosage: 13.54 MILLIGRAM/KILOGRAM/DAY
  3. EPIDIOLEX [Suspect]
     Active Substance: CANNABIDIOL
     Dosage: 14.7 MILLIGRAM/KILOGRAM, QD
     Route: 048
     Dates: start: 20240422

REACTIONS (5)
  - Status epilepticus [Not Recovered/Not Resolved]
  - Seizure [Recovered/Resolved]
  - Epilepsy [Not Recovered/Not Resolved]
  - Epilepsy [Recovered/Resolved]
  - Epilepsy [Recovered/Resolved]

NARRATIVE: CASE EVENT DATE: 20231220
